FAERS Safety Report 4991706-4 (Version None)
Quarter: 2006Q2

REPORT INFORMATION
  Report Type: 
  Country: None (occurrence: None)
  Receive Date: 20060504
  Receipt Date: 20060220
  Transmission Date: 20061013
  Serious: Yes (Life-Threatening)
  Sender: FDA-Public Use
  Company Number: JP-JPN-A200600689

PATIENT
  Age: 76 Year
  Sex: Male
  Weight: 43 kg

DRUGS (9)
  1. VALTREX [Suspect]
     Indication: HERPES ZOSTER
     Dosage: 1000MG THREE TIMES PER DAY
     Route: 048
     Dates: start: 20060217, end: 20060220
  2. HOKUNALIN [Concomitant]
     Indication: EMPHYSEMA
     Dosage: 1MG PER DAY
     Route: 062
  3. HARNAL [Concomitant]
     Indication: BENIGN PROSTATIC HYPERPLASIA
     Dosage: .2MG PER DAY
     Route: 048
     Dates: start: 20050301
  4. MUCODYNE [Concomitant]
     Dosage: 1000MG PER DAY
     Route: 048
  5. MUCOSOLVAN [Concomitant]
     Dosage: 45MG PER DAY
     Route: 048
     Dates: start: 20060110
  6. MAGNESIUM OXIDE [Concomitant]
     Indication: CONSTIPATION
     Dosage: 1.5MG PER DAY
     Route: 048
     Dates: start: 20050502
  7. CASAL [Concomitant]
     Indication: HERPES ZOSTER
     Route: 061
     Dates: start: 20060216
  8. ZOVIRAX [Concomitant]
     Indication: DRUG USE FOR UNKNOWN INDICATION
     Route: 061
     Dates: start: 20060217
  9. CLARITHROMYCIN [Concomitant]
     Dosage: 400MG UNKNOWN
     Dates: start: 20060130

REACTIONS (5)
  - BRADYCARDIA [None]
  - EATING DISORDER [None]
  - FACIAL PAIN [None]
  - SOMNOLENCE [None]
  - TACHYCARDIA [None]
